FAERS Safety Report 21586933 (Version 1)
Quarter: 2022Q4

REPORT INFORMATION
  Report Type: Spontaneous
  Country: US (occurrence: None)
  Receive Date: 20221110
  Receipt Date: 20221110
  Transmission Date: 20230112
  Serious: Yes (Hospitalization)
  Sender: FDA-Public Use
  Company Number: None

PATIENT
  Sex: Female

DRUGS (1)
  1. REBIF REBIDOSE [Suspect]
     Active Substance: INTERFERON BETA-1A
     Indication: Multiple sclerosis
     Dosage: 44MCG 2 TIMES WEEKLY SUBCUTANEOUS?
     Route: 058
     Dates: start: 20130710

REACTIONS (3)
  - Lower limb fracture [None]
  - Lower limb fracture [None]
  - COVID-19 [None]
